FAERS Safety Report 11994446 (Version 2)
Quarter: 2016Q1

REPORT INFORMATION
  Report Type: Spontaneous
  Country: US (occurrence: US)
  Receive Date: 20160203
  Receipt Date: 20160218
  Transmission Date: 20160526
  Serious: Yes (Hospitalization, Other)
  Sender: FDA-Public Use
  Company Number: US-APOTEX-2016AP005996

PATIENT
  Age: 54 Year
  Sex: Male

DRUGS (4)
  1. MODAFINIL TABLETS USP [Suspect]
     Active Substance: MODAFINIL
     Indication: PRODUCT USED FOR UNKNOWN INDICATION
     Route: 065
  2. ARMODAFINIL. [Suspect]
     Active Substance: ARMODAFINIL
     Indication: PRODUCT USED FOR UNKNOWN INDICATION
     Dosage: 1200 MG OF DAILY, DESPITE ONLY BEING PRESCRIBED 250 MG PER DAY
     Route: 065
  3. VALIUM [Suspect]
     Active Substance: DIAZEPAM
     Indication: PRODUCT USED FOR UNKNOWN INDICATION
     Route: 065
  4. CLONAZEPAM TABLETS USP [Suspect]
     Active Substance: CLONAZEPAM
     Indication: PRODUCT USED FOR UNKNOWN INDICATION
     Route: 065

REACTIONS (8)
  - Insomnia [Unknown]
  - Delusion [Unknown]
  - Seizure [Unknown]
  - Drug withdrawal syndrome [Unknown]
  - Hyponatraemia [Recovered/Resolved]
  - Drug dependence [Unknown]
  - Psychotic disorder [Unknown]
  - Anxiety [Unknown]
